FAERS Safety Report 9903129 (Version 1)
Quarter: 2014Q1

REPORT INFORMATION
  Report Type: Spontaneous
  Country: US (occurrence: US)
  Receive Date: 20140217
  Receipt Date: 20140217
  Transmission Date: 20141002
  Serious: No
  Sender: FDA-Public Use
  Company Number: US-ASTRAZENECA-2013SE18648

PATIENT
  Sex: Male

DRUGS (1)
  1. TENORMIN [Suspect]
     Route: 048

REACTIONS (2)
  - Blood pressure increased [Unknown]
  - Headache [Unknown]
